FAERS Safety Report 8529369-3 (Version None)
Quarter: 2012Q3

REPORT INFORMATION
  Report Type: 
  Country: None (occurrence: None)
  Receive Date: 20120723
  Receipt Date: 20120712
  Transmission Date: 20120928
  Serious: Yes (Hospitalization)
  Sender: FDA-Public Use
  Company Number: US-SANOFI-AVENTIS-2012SA050018

PATIENT
  Age: 58 Year
  Sex: Female

DRUGS (2)
  1. DDAVP [Suspect]
     Route: 045
  2. DDAVP [Suspect]
     Indication: DIABETES INSIPIDUS
     Dosage: 0.1 MG IN THE MORNING AND 0.2 MG IN THE EVENING
     Route: 048

REACTIONS (1)
  - VOMITING [None]
